FAERS Safety Report 24914325 (Version 2)
Quarter: 2025Q4

REPORT INFORMATION
  Report Type: Report from Study
  Country: EU (occurrence: EU)
  Receive Date: 20250203
  Receipt Date: 20251003
  Transmission Date: 20260118
  Serious: Yes (Other)
  Sender: ABBVIE
  Company Number: EU-ABBVIE-6111486

PATIENT
  Age: 70 Year
  Sex: Male

DRUGS (3)
  1. CARBIDOPA\LEVODOPA [Suspect]
     Active Substance: CARBIDOPA\LEVODOPA
     Indication: Parkinson^s disease
     Dosage: MD 14.0ML; CRT 4.8ML/H; CRL 3.0ML/H; ED 2.0ML
     Route: 050
     Dates: start: 20190611, end: 20250128
  2. CARBIDOPA\LEVODOPA [Suspect]
     Active Substance: CARBIDOPA\LEVODOPA
     Dosage: MD 16.0ML; CRT 4.8ML/H; CRL 3.0ML/H; ED 2.0ML
     Route: 050
     Dates: start: 20250128
  3. CARBIDOPA\LEVODOPA [Suspect]
     Active Substance: CARBIDOPA\LEVODOPA
     Dosage: MD 16.0ML; CR DAY- TIME 4.8 ML/H; CR NIGHT-TIME 3.0ML/H; ED 2.2 ML
     Route: 050

REACTIONS (5)
  - Seizure [Not Recovered/Not Resolved]
  - Hypokinesia [Recovering/Resolving]
  - Tremor [Unknown]
  - Epilepsy [Not Recovered/Not Resolved]
  - General physical health deterioration [Not Recovered/Not Resolved]

NARRATIVE: CASE EVENT DATE: 20250908
